FAERS Safety Report 7054294-7 (Version None)
Quarter: 2010Q4

REPORT INFORMATION
  Report Type: 
  Country: None (occurrence: None)
  Receive Date: 20101020
  Receipt Date: 20101001
  Transmission Date: 20110411
  Serious: Yes (Hospitalization)
  Sender: FDA-Public Use
  Company Number: US-BAYER-201023661NA

PATIENT
  Age: 25 Year
  Sex: Female
  Weight: 122 kg

DRUGS (6)
  1. YASMIN [Suspect]
     Indication: PRODUCT USED FOR UNKNOWN INDICATION
     Route: 048
     Dates: start: 20070601, end: 20071201
  2. OCELLA [Suspect]
     Indication: PRODUCT USED FOR UNKNOWN INDICATION
     Route: 048
     Dates: start: 20070601, end: 20071201
  3. YAZ [Suspect]
     Indication: CONTRACEPTION
     Dates: start: 20060801, end: 20061101
  4. ORAL CONTRACEPTIVE [Concomitant]
  5. SYNTHROID [Concomitant]
     Dosage: 25 MCG
  6. NSAID'S [Concomitant]

REACTIONS (2)
  - DYSPNOEA [None]
  - PULMONARY EMBOLISM [None]
